FAERS Safety Report 6112691-8 (Version None)
Quarter: 2009Q1

REPORT INFORMATION
  Report Type: 
  Country: None (occurrence: None)
  Receive Date: 20090312
  Receipt Date: 20090302
  Transmission Date: 20090719
  Serious: Yes (Other)
  Sender: FDA-Public Use
  Company Number: IS-PFIZER INC-2009178531

PATIENT

DRUGS (3)
  1. SUTENT [Suspect]
     Indication: RENAL CELL CARCINOMA
     Dosage: 50 MG, DAILY
     Dates: start: 20090112
  2. LANOXIN [Concomitant]
  3. SELOKEN [Concomitant]
     Dosage: UNK MG, UNK

REACTIONS (1)
  - POLYNEUROPATHY [None]
